FAERS Safety Report 17373823 (Version 1)
Quarter: 2020Q1

REPORT INFORMATION
  Report Type: Report from Study
  Country: None (occurrence: CA)
  Receive Date: 20200206
  Receipt Date: 20200206
  Transmission Date: 20200409
  Serious: Yes (Congenital Anomaly, Other)
  Sender: FDA-Public Use
  Company Number: CA-ABBVIE-20K-028-3255527-00

PATIENT

DRUGS (5)
  1. ZIDOVUDINE. [Suspect]
     Active Substance: ZIDOVUDINE
     Indication: MATERNAL EXPOSURE TIMING UNSPECIFIED
     Route: 064
  2. ATAZANAVIR. [Suspect]
     Active Substance: ATAZANAVIR
     Indication: MATERNAL EXPOSURE TIMING UNSPECIFIED
     Route: 064
  3. ABACAVIR. [Suspect]
     Active Substance: ABACAVIR
     Indication: MATERNAL EXPOSURE TIMING UNSPECIFIED
     Route: 064
  4. RITONAVIR. [Suspect]
     Active Substance: RITONAVIR
     Indication: MATERNAL EXPOSURE TIMING UNSPECIFIED
     Route: 064
  5. LAMIVUDINE. [Suspect]
     Active Substance: LAMIVUDINE
     Indication: MATERNAL EXPOSURE TIMING UNSPECIFIED
     Route: 064

REACTIONS (4)
  - Foetal exposure during pregnancy [Unknown]
  - Neural tube defect [Unknown]
  - Anencephaly [Unknown]
  - Spina bifida [Unknown]
